FAERS Safety Report 10965182 (Version 1)
Quarter: 2015Q1

REPORT INFORMATION
  Report Type: Spontaneous
  Country: US (occurrence: US)
  Receive Date: 20150330
  Receipt Date: 20150330
  Transmission Date: 20150721
  Serious: No
  Sender: FDA-Public Use
  Company Number: US-PFIZER INC-2015097776

PATIENT
  Age: 55 Year

DRUGS (15)
  1. FERROUS SULFATE [Concomitant]
     Active Substance: FERROUS SULFATE\FERROUS SULFATE, DRIED
     Indication: HYPERSENSITIVITY
     Dosage: 325 MG, 1X/DAY DAILY
     Route: 048
     Dates: start: 20070416
  2. FUROSEMIDE. [Concomitant]
     Active Substance: FUROSEMIDE
     Indication: OEDEMA
     Dosage: 20 MG, AS NEEDED 2 TAB DAILY AS NEEDED
     Route: 048
     Dates: start: 20071128
  3. LANSOPRAZOLE. [Concomitant]
     Active Substance: LANSOPRAZOLE
     Indication: PROPHYLAXIS
     Dosage: 30 MG, 2X/DAY
     Route: 048
     Dates: start: 20150115
  4. AUGMENTIN [Concomitant]
     Active Substance: AMOXICILLIN\CLAVULANATE POTASSIUM
     Dosage: 500 MG/125 MG TWICE DAILY
     Route: 048
     Dates: start: 20141028
  5. NASONEX [Concomitant]
     Active Substance: MOMETASONE FUROATE
     Indication: HYPERSENSITIVITY
     Dosage: 50 ?G, 1X/DAY 1-2 SPRAY DAILY
     Route: 045
     Dates: start: 20081001
  6. ASPIRIN. [Concomitant]
     Active Substance: ASPIRIN
     Dosage: 81 MG, 1X/DAY
     Route: 048
     Dates: start: 20070202
  7. FOLIC ACID. [Concomitant]
     Active Substance: FOLIC ACID
     Indication: ROUTINE HEALTH MAINTENANCE
     Dosage: 1 MG, 1X/DAY
     Route: 048
     Dates: start: 20021104
  8. MULTIVITAMINS [Concomitant]
     Active Substance: VITAMINS
     Dosage: 1 DF, DAILY
     Dates: start: 20030602
  9. RAPAMUNE [Suspect]
     Active Substance: SIROLIMUS
     Indication: RENAL TRANSPLANT
     Dosage: 1 MG, 2X/DAY DAILY
     Route: 048
     Dates: start: 20090916
  10. PROGRAF [Concomitant]
     Active Substance: TACROLIMUS\TACROLIMUS ANHYDROUS
     Indication: RENAL TRANSPLANT
     Dosage: 1 MG, 2X/DAY
     Route: 048
     Dates: start: 20010705
  11. PROGRAF [Concomitant]
     Active Substance: TACROLIMUS\TACROLIMUS ANHYDROUS
     Indication: PANCREAS TRANSPLANT
     Dosage: 1 MG, 2X/DAY
     Route: 048
     Dates: start: 20100211
  12. ALLEGRA ALLERGY [Concomitant]
     Active Substance: FEXOFENADINE HYDROCHLORIDE
     Indication: HYPERSENSITIVITY
     Dosage: 180 MG, 1X/DAY AS NEEDED
     Route: 048
     Dates: start: 20100915
  13. CITRACAL [Concomitant]
     Active Substance: CALCIUM CITRATE
     Dosage: 950 MG, 2X/DAY
     Dates: start: 20030602
  14. RAPAMUNE [Suspect]
     Active Substance: SIROLIMUS
     Indication: PANCREAS TRANSPLANT
  15. METOPROLOL TARTRATE. [Concomitant]
     Active Substance: METOPROLOL TARTRATE
     Indication: HYPERTENSION
     Dosage: 100 MG, 2X/DAY
     Route: 048
     Dates: start: 20090916

REACTIONS (5)
  - Hypertension [Unknown]
  - Oedema [Unknown]
  - Hyperlipidaemia [Unknown]
  - Product use issue [Unknown]
  - Condition aggravated [Unknown]

NARRATIVE: CASE EVENT DATE: 20090916
